FAERS Safety Report 6380066-2 (Version None)
Quarter: 2009Q3

REPORT INFORMATION
  Report Type: 
  Country: None (occurrence: None)
  Receive Date: 20090928
  Receipt Date: 20090922
  Transmission Date: 20100115
  Serious: Yes (Hospitalization)
  Sender: FDA-Public Use
  Company Number: US-GILEAD-2009-0024178

PATIENT
  Sex: Female

DRUGS (13)
  1. LETAIRIS [Suspect]
     Indication: PULMONARY ARTERIAL HYPERTENSION
  2. LASIX [Concomitant]
  3. MAXZIDE [Concomitant]
  4. NORVASC [Concomitant]
  5. DIOVAN [Concomitant]
  6. ADVAIR DISKUS 250/50 [Concomitant]
  7. SINGULAIR [Concomitant]
  8. K-DUR [Concomitant]
  9. PROZAC [Concomitant]
  10. ADVANTIA [Concomitant]
  11. METFORMIN HCL [Concomitant]
  12. FERROUS SULFATE TAB [Concomitant]
  13. PRILOSEC [Concomitant]

REACTIONS (3)
  - DYSPNOEA [None]
  - OEDEMA PERIPHERAL [None]
  - PNEUMONIA [None]
